FAERS Safety Report 21350602 (Version 3)
Quarter: 2022Q4

REPORT INFORMATION
  Report Type: Report from Study
  Country: US (occurrence: US)
  Receive Date: 20220919
  Receipt Date: 20221209
  Transmission Date: 20230112
  Serious: Yes (Hospitalization, Other)
  Sender: FDA-Public Use
  Company Number: US-BRISTOL-MYERS SQUIBB COMPANY-2022-096485

PATIENT
  Age: 65 Year
  Sex: Male
  Weight: 91 kg

DRUGS (33)
  1. DEXAMETHASONE [Suspect]
     Active Substance: DEXAMETHASONE
     Indication: Plasma cell myeloma
     Route: 048
     Dates: start: 20220621, end: 20220629
  2. POMALIDOMIDE [Suspect]
     Active Substance: POMALIDOMIDE
     Indication: Plasma cell myeloma
     Route: 048
     Dates: start: 20220621, end: 20220703
  3. DARATUMUMAB [Suspect]
     Active Substance: DARATUMUMAB
     Indication: Plasma cell myeloma
     Route: 058
     Dates: start: 20220621, end: 20220629
  4. ANASTROZOLE [Concomitant]
     Active Substance: ANASTROZOLE
     Indication: Hypogonadism
     Dosage: 0.2143 MG (1.5 MG,1 IN 1 WK)
     Route: 048
     Dates: start: 20190528
  5. CYANOCOBALAMIN [Concomitant]
     Active Substance: CYANOCOBALAMIN
     Indication: General physical condition
     Dosage: 2 DOSAGE FORMS (1 DOSAGE FORMS,1 IN 0.5 D)
     Route: 048
     Dates: start: 20130101
  6. XARELTO [Concomitant]
     Active Substance: RIVAROXABAN
     Indication: Thrombosis prophylaxis
     Dosage: 1 IN 1 D
     Route: 048
     Dates: start: 20220509
  7. FILGRASTIM [Concomitant]
     Active Substance: FILGRASTIM
     Indication: Neutrophil count decreased
     Dosage: DOSE ALSE REPORTED AS 0.8 ML (480 MCG, OTHER)
     Route: 058
     Dates: start: 20220629, end: 20220703
  8. BUPROPION [Concomitant]
     Active Substance: BUPROPION
     Indication: Depression
     Route: 048
     Dates: start: 20130101
  9. TESTOSTERONE CYPIONATE [Concomitant]
     Active Substance: TESTOSTERONE CYPIONATE
     Indication: Hypogonadism
     Dosage: 0.0714 ML (0.5 ML,1 IN 1 WK)
     Route: 030
     Dates: start: 20171218
  10. VITAMIN B COMPLEX [Concomitant]
     Active Substance: CYANOCOBALAMIN\DEXPANTHENOL\NIACINAMIDE\PYRIDOXINE HYDROCHLORIDE\RIBOFLAVIN 5^-PHOSPHATE SODIUM\THIA
     Indication: General physical condition
     Route: 048
     Dates: start: 20190709
  11. CITRULLINE [Concomitant]
     Active Substance: CITRULLINE
     Indication: Erectile dysfunction
     Dosage: 2 DOSAGE FORMS (1 DOSAGE FORMS,1 IN 0.5 D)
     Route: 048
     Dates: start: 20190709
  12. ACYCLOVIR [Concomitant]
     Active Substance: ACYCLOVIR
     Indication: Infection prophylaxis
     Dosage: 1600 MG (800 MG,1 IN 0.5 D)
     Route: 048
     Dates: start: 20200519
  13. CANNABIS SATIVA FLOWERING TOP [Concomitant]
     Active Substance: CANNABIS SATIVA FLOWERING TOP
     Indication: Insomnia
     Dosage: AS REQUIRED
     Route: 048
     Dates: start: 20211001
  14. CHORIONIC GONADOTROPIN [Concomitant]
     Active Substance: CHORIOGONADOTROPIN ALFA
     Indication: Hypogonadism
     Dosage: 0.1429 DOSAGE FORMS
     Route: 058
     Dates: start: 20220201
  15. NALOXONE [Concomitant]
     Active Substance: NALOXONE
     Indication: Overdose
     Dosage: AS REQUIRED
     Route: 045
     Dates: start: 20220421
  16. ZINC [Concomitant]
     Active Substance: ZINC
     Indication: General physical condition
     Route: 048
     Dates: start: 20220504
  17. PRAVASTATIN SODIUM [Concomitant]
     Active Substance: PRAVASTATIN SODIUM
     Indication: Coronary artery disease
     Route: 048
     Dates: start: 20220505
  18. AMLODIPINE [Concomitant]
     Active Substance: AMLODIPINE BESYLATE
     Indication: Hypertension
     Route: 048
     Dates: start: 20220510
  19. ONDANSETRON [Concomitant]
     Active Substance: ONDANSETRON
     Indication: Nausea
     Dosage: 4 MG, OTHER
     Route: 048
     Dates: start: 20220510
  20. ONDANSETRON [Concomitant]
     Active Substance: ONDANSETRON
     Indication: Vomiting
     Dosage: 20 MG, OTHER
     Route: 048
     Dates: start: 20220513
  21. ONDANSETRON [Concomitant]
     Active Substance: ONDANSETRON
     Dosage: 30 MG, OTHER
     Route: 048
     Dates: start: 20220516
  22. LORAZEPAM [Concomitant]
     Active Substance: LORAZEPAM
     Indication: Anxiety
     Dosage: 1-2 (AS REQUIRED)
     Route: 048
     Dates: start: 20220526
  23. TADALAFIL [Concomitant]
     Active Substance: TADALAFIL
     Indication: Erectile dysfunction
     Route: 048
     Dates: start: 20220114
  24. OXYCODONE [Concomitant]
     Active Substance: OXYCODONE
     Indication: Cancer pain
     Dosage: ER (20 MG,OTHER)
     Route: 048
     Dates: start: 20220513
  25. OXYCODONE [Concomitant]
     Active Substance: OXYCODONE
     Dosage: 1-1.5 (30 MG)
     Route: 048
     Dates: start: 20220516
  26. TYLENOL [Concomitant]
     Active Substance: ACETAMINOPHEN
     Indication: Myalgia
     Dosage: 650 MG (650 MG,1 IN 1 AS REQUIRED)
     Dates: start: 20220622
  27. TYLENOL [Concomitant]
     Active Substance: ACETAMINOPHEN
     Indication: Headache
  28. TYLENOL [Concomitant]
     Active Substance: ACETAMINOPHEN
     Indication: Febrile neutropenia
  29. MAGNESIUM [MAGNESIUM HYDROXIDE] [Concomitant]
     Indication: General physical condition
     Route: 048
     Dates: start: 20220621
  30. MAGNESIUM [MAGNESIUM HYDROXIDE] [Concomitant]
     Indication: Muscle spasms
  31. VITAMIN D3 [Concomitant]
     Active Substance: CHOLECALCIFEROL
     Indication: General physical condition
     Route: 048
     Dates: start: 20220313
  32. PABRINEX [ASCORBIC ACID;NICOTINAMIDE;PYRIDOXINE HYDROCHLORIDE;RIBOFLAV [Concomitant]
     Indication: General physical condition
     Route: 048
     Dates: start: 20190709
  33. CBD ADREXOL [Concomitant]
     Indication: Insomnia
     Dosage: (10 MG, AS REQUIRED)
     Route: 048
     Dates: start: 20211001

REACTIONS (2)
  - Febrile neutropenia [Recovered/Resolved]
  - Escherichia sepsis [Recovered/Resolved]

NARRATIVE: CASE EVENT DATE: 20220704
